FAERS Safety Report 19312770 (Version 2)
Quarter: 2021Q2

REPORT INFORMATION
  Report Type: Spontaneous
  Country: JP (occurrence: JP)
  Receive Date: 20210527
  Receipt Date: 20210613
  Transmission Date: 20210717
  Serious: Yes (Death, Other)
  Sender: FDA-Public Use
  Company Number: JP-SAKK-2021SA174005AA

PATIENT
  Age: 42 Year
  Sex: Male
  Weight: 50 kg

DRUGS (5)
  1. HEMLIBRA [Concomitant]
     Active Substance: EMICIZUMAB-KXWH
     Indication: FACTOR VIII DEFICIENCY
     Dosage: 90 MG, QW
     Route: 065
     Dates: start: 20180702, end: 20210424
  2. ISENTRESS [Concomitant]
     Active Substance: RALTEGRAVIR POTASSIUM
     Indication: PRODUCT USED FOR UNKNOWN INDICATION
     Route: 065
  3. ELOCTATE [Suspect]
     Active Substance: (1-743)-(1638-2332)-BLOOD-COAGULATION FACTOR VIII (SYNTHETIC HUMAN) FUSION PROTEIN WITH IMMUNOGLOBULIN G1 (SYNTHETIC HUMAN FC DOMAIN FRAGMENT), (1444-6^),(1447-9^)-BIS(DISULFIDE) WITH IMMUNOGLOBULIN G1 (SYNTHETIC HUMAN FC DOMAIN FRAGMENT)
     Indication: FACTOR VIII DEFICIENCY
     Dosage: 2000 IU, BIW
     Route: 042
     Dates: start: 20200824, end: 20210426
  4. BYCLOT [Concomitant]
     Active Substance: COAGULATION FACTOR VII HUMAN\COAGULATION FACTOR X HUMAN
     Indication: PRODUCT USED FOR UNKNOWN INDICATION
     Route: 065
  5. ELOCTATE [Suspect]
     Active Substance: (1-743)-(1638-2332)-BLOOD-COAGULATION FACTOR VIII (SYNTHETIC HUMAN) FUSION PROTEIN WITH IMMUNOGLOBULIN G1 (SYNTHETIC HUMAN FC DOMAIN FRAGMENT), (1444-6^),(1447-9^)-BIS(DISULFIDE) WITH IMMUNOGLOBULIN G1 (SYNTHETIC HUMAN FC DOMAIN FRAGMENT)
     Indication: FACTOR VIII DEFICIENCY
     Dosage: 2000 IU, BIW
     Route: 042
     Dates: start: 20200824, end: 20210426

REACTIONS (2)
  - Organ failure [Fatal]
  - Intra-abdominal haemorrhage [Fatal]

NARRATIVE: CASE EVENT DATE: 20210424
